FAERS Safety Report 9924813 (Version 1)
Quarter: 2014Q1

REPORT INFORMATION
  Report Type: Spontaneous
  Country: US (occurrence: None)
  Receive Date: 20140224
  Receipt Date: 20140224
  Transmission Date: 20141002
  Serious: Yes (Other)
  Sender: FDA-Public Use
  Company Number: None

PATIENT
  Age: 35 Year
  Sex: Female
  Weight: 89.81 kg

DRUGS (1)
  1. CIPROFLOXACIN HCL [Suspect]
     Indication: INCISION SITE INFECTION
     Dosage: 1 PILL TWICE DAILY
     Route: 048
     Dates: start: 20140220, end: 20140220

REACTIONS (4)
  - Syncope [None]
  - Vision blurred [None]
  - Tinnitus [None]
  - Activities of daily living impaired [None]
